FAERS Safety Report 4982564-2 (Version None)
Quarter: 2006Q2

REPORT INFORMATION
  Report Type: 
  Country: None (occurrence: None)
  Receive Date: 20060421
  Receipt Date: 20060407
  Transmission Date: 20061013
  Serious: Yes (Hospitalization)
  Sender: FDA-Public Use
  Company Number: CERZ-11185

PATIENT
  Age: 71 Year
  Sex: Female
  Weight: 66.2252 kg

DRUGS (2)
  1. CEREZYME [Suspect]
     Indication: GAUCHER'S DISEASE
     Dosage: 4000 UNITS Q4WKS IV
     Route: 042
     Dates: start: 20010822
  2. CEREZYME [Suspect]
     Indication: GAUCHER'S DISEASE
     Dosage: 3800 UNITS Q4WKS IV
     Route: 042
     Dates: start: 20010822

REACTIONS (2)
  - ADVERSE EVENT [None]
  - UPPER RESPIRATORY TRACT INFECTION [None]
